FAERS Safety Report 5363859-X (Version None)
Quarter: 2007Q2

REPORT INFORMATION
  Report Type: 
  Country: None (occurrence: None)
  Receive Date: 20070530
  Receipt Date: 20070108
  Transmission Date: 20071010
  Serious: No
  Sender: FDA-Public Use
  Company Number: 2007PV028003

PATIENT
  Age: 40 Year
  Sex: Female

DRUGS (3)
  1. BYETTA [Suspect]
     Indication: DIABETES MELLITUS NON-INSULIN-DEPENDENT
     Dosage: 10 MCG;BID;SC, 10 MCG;BID;SC, 5 MCG;BID;SC
     Route: 058
     Dates: start: 20060701, end: 20061201
  2. BYETTA [Suspect]
     Indication: DIABETES MELLITUS NON-INSULIN-DEPENDENT
     Dosage: 10 MCG;BID;SC, 10 MCG;BID;SC, 5 MCG;BID;SC
     Route: 058
     Dates: start: 20061213, end: 20070104
  3. BYETTA [Suspect]
     Indication: DIABETES MELLITUS NON-INSULIN-DEPENDENT
     Dosage: 10 MCG;BID;SC, 10 MCG;BID;SC, 5 MCG;BID;SC
     Route: 058
     Dates: start: 20070107

REACTIONS (4)
  - ABDOMINAL PAIN UPPER [None]
  - GASTROENTERITIS VIRAL [None]
  - PAINFUL DEFAECATION [None]
  - RECTAL HAEMORRHAGE [None]
